FAERS Safety Report 20417295 (Version 1)
Quarter: 2022Q1

REPORT INFORMATION
  Report Type: Spontaneous
  Country: US (occurrence: None)
  Receive Date: 20220202
  Receipt Date: 20220202
  Transmission Date: 20220423
  Serious: No
  Sender: FDA-Public Use
  Company Number: None

PATIENT
  Age: 15 Year
  Sex: Male
  Weight: 82.8 kg

DRUGS (4)
  1. RISPERIDONE [Suspect]
     Active Substance: RISPERIDONE
     Indication: Bipolar disorder
     Dosage: FREQUENCY : 3 TIMES A DAY;?
     Route: 048
     Dates: start: 20200506
  2. RISPERIDONE [Suspect]
     Active Substance: RISPERIDONE
     Indication: Generalised anxiety disorder
  3. RISPERIDONE [Suspect]
     Active Substance: RISPERIDONE
     Indication: Attention deficit hyperactivity disorder
  4. RISPERIDONE [Suspect]
     Active Substance: RISPERIDONE
     Indication: Reactive attachment disorder of infancy or early childhood

REACTIONS (3)
  - Product substitution issue [None]
  - Mood swings [None]
  - Aggression [None]

NARRATIVE: CASE EVENT DATE: 20210222
